FAERS Safety Report 9015502 (Version 1)
Quarter: 2013Q1

REPORT INFORMATION
  Report Type: Spontaneous
  Country: AU (occurrence: AU)
  Receive Date: 20130116
  Receipt Date: 20130116
  Transmission Date: 20140127
  Serious: Yes (Hospitalization)
  Sender: FDA-Public Use
  Company Number: PHHY2013AU003838

PATIENT
  Sex: Male

DRUGS (10)
  1. TASIGNA [Suspect]
     Indication: CHRONIC MYELOID LEUKAEMIA
     Dosage: 400 MG, UNK
     Route: 048
     Dates: start: 200610, end: 201011
  2. ASPIRIN [Concomitant]
  3. ATENOLOL [Concomitant]
  4. BRUFEN [Concomitant]
  5. CITRACAL + D [Concomitant]
  6. LIPITOR [Concomitant]
  7. NATRILIX [Concomitant]
  8. PANADEINE [Concomitant]
  9. PARIET [Concomitant]
  10. ZANIDIP [Concomitant]

REACTIONS (1)
  - Coronary artery occlusion [Unknown]
